FAERS Safety Report 4576219-6 (Version None)
Quarter: 2005Q1

REPORT INFORMATION
  Report Type: 
  Country: None (occurrence: None)
  Receive Date: 20050119
  Receipt Date: 20041026
  Transmission Date: 20050727
  Serious: Yes (Other)
  Sender: FDA-Public Use
  Company Number: A03200403584

PATIENT
  Age: 78 Year
  Sex: Female
  Weight: 68.0396 kg

DRUGS (6)
  1. PLAVIX [Suspect]
     Indication: ANGINA UNSTABLE
     Dosage: 75 MG QD - ORAL
     Route: 048
     Dates: start: 20040908, end: 20041001
  2. PLAVIX [Suspect]
     Indication: STENT PLACEMENT
     Dosage: 75 MG QD - ORAL
     Route: 048
     Dates: start: 20040908, end: 20041001
  3. PLAVIX [Suspect]
     Indication: ANGINA UNSTABLE
     Dosage: 75 MG OD - ORAL
     Route: 048
     Dates: start: 20041028
  4. PLAVIX [Suspect]
     Indication: STENT PLACEMENT
     Dosage: 75 MG OD - ORAL
     Route: 048
     Dates: start: 20041028
  5. MACRODANTIN [Suspect]
     Indication: CYSTITIS
     Dosage: ORAL
     Route: 048
     Dates: start: 20040908, end: 20041001
  6. MACRODANTIN [Suspect]
     Indication: CYSTITIS
     Dosage: ORAL
     Route: 048
     Dates: start: 20041028, end: 20041028

REACTIONS (3)
  - CYSTITIS [None]
  - FEELING ABNORMAL [None]
  - PNEUMONIA [None]
